FAERS Safety Report 23973483 (Version 1)
Quarter: 2024Q2

REPORT INFORMATION
  Report Type: Spontaneous
  Country: CA (occurrence: CA)
  Receive Date: 20240613
  Receipt Date: 20240613
  Transmission Date: 20240717
  Serious: Yes (Hospitalization, Other)
  Sender: FDA-Public Use
  Company Number: CA-SANDOZ-SDZ2024CA057077

PATIENT
  Sex: Female

DRUGS (1)
  1. CYCLOSPORINE [Suspect]
     Active Substance: CYCLOSPORINE
     Indication: Product used for unknown indication
     Dosage: UNK
     Route: 065

REACTIONS (6)
  - Pain [Recovering/Resolving]
  - Perineal ulceration [Recovering/Resolving]
  - Secretion discharge [Recovering/Resolving]
  - Skin erosion [Recovering/Resolving]
  - Ulcer [Recovering/Resolving]
  - Herpes simplex [Recovering/Resolving]
